FAERS Safety Report 8596169 (Version 2)
Quarter: 2013Q4

REPORT INFORMATION
  Report Type: Spontaneous
  Country: US (occurrence: US)
  Receive Date: 20120605
  Receipt Date: 20131010
  Transmission Date: 20140711
  Serious: Yes (Other)
  Sender: FDA-Public Use
  Company Number: US-ASTRAZENECA-2012SE35674

PATIENT
  Sex: Female

DRUGS (6)
  1. NEXIUM [Suspect]
     Route: 048
  2. PRILOSEC [Suspect]
     Route: 048
  3. ACIPHEX [Concomitant]
  4. PREVACID [Concomitant]
  5. PROTONIX [Concomitant]
  6. PEPCID [Concomitant]

REACTIONS (7)
  - Musculoskeletal discomfort [Unknown]
  - Osteoporosis [Unknown]
  - Multiple fractures [Unknown]
  - Ankle fracture [Unknown]
  - Wrist fracture [Unknown]
  - Arthritis [Unknown]
  - Depression [Unknown]
